FAERS Safety Report 6671956-1 (Version None)
Quarter: 2010Q2

REPORT INFORMATION
  Report Type: 
  Country: None (occurrence: None)
  Receive Date: 20100407
  Receipt Date: 20100401
  Transmission Date: 20101027
  Serious: Yes (Hospitalization, Other)
  Sender: FDA-Public Use
  Company Number: US-ABBOTT-10P-163-0636142-00

PATIENT
  Sex: Male
  Weight: 76.272 kg

DRUGS (1)
  1. NIASPAN [Suspect]
     Indication: DRUG USE FOR UNKNOWN INDICATION

REACTIONS (3)
  - ANGIOPLASTY [None]
  - MUSCULOSKELETAL STIFFNESS [None]
  - PLATELET COUNT DECREASED [None]
